FAERS Safety Report 8303038-7 (Version None)
Quarter: 2012Q2

REPORT INFORMATION
  Report Type: 
  Country: None (occurrence: None)
  Receive Date: 20120422
  Receipt Date: 20120413
  Transmission Date: 20120825
  Serious: Yes (Other)
  Sender: FDA-Public Use
  Company Number: JP-VERTEX PHARMACEUTICALS INC.-AE-2012-005500

PATIENT
  Age: 50 Year
  Sex: Male

DRUGS (19)
  1. RIBAVIRIN [Concomitant]
     Route: 048
     Dates: start: 20120224, end: 20120308
  2. PEGINTERFERON ALFA-2B [Concomitant]
     Indication: HEPATITIS C
     Route: 051
     Dates: start: 20120105, end: 20120302
  3. MYSER 0..5% [Concomitant]
     Route: 061
     Dates: start: 20120110
  4. RIBAVIRIN [Concomitant]
     Route: 048
     Dates: start: 20120309
  5. PEGINTERFERON ALFA-2B [Concomitant]
     Route: 051
     Dates: start: 20120309
  6. EPINASTINE HYDROCHLORIDE [Concomitant]
     Route: 048
     Dates: start: 20120112
  7. POLARAMINE [Concomitant]
     Route: 048
     Dates: start: 20120116
  8. CLOBETASOL PROPIONATE [Concomitant]
     Route: 061
     Dates: start: 20120112
  9. ATARAX [Concomitant]
     Route: 048
     Dates: start: 20120112
  10. PREDNISOLONE [Concomitant]
     Route: 048
     Dates: start: 20120113
  11. PREDNISOLONE [Concomitant]
     Route: 048
     Dates: start: 20120116
  12. MUCOSTA [Concomitant]
     Route: 048
     Dates: start: 20120113
  13. EPINASTINE HYDROCHLORIDE [Concomitant]
     Route: 048
     Dates: start: 20120110
  14. EPINASTINE HYDROCHLORIDE [Concomitant]
     Route: 048
     Dates: start: 20120116
  15. MUCOSTA [Concomitant]
     Route: 048
     Dates: start: 20120116
  16. TELAVIC (TELAPREVIR) [Suspect]
     Indication: HEPATITIS C
     Route: 048
     Dates: start: 20120105
  17. RIBAVIRIN [Concomitant]
     Indication: HEPATITIS C
     Route: 048
     Dates: start: 20120105, end: 20120223
  18. BETAMETHASONE [Concomitant]
     Route: 061
     Dates: start: 20120110
  19. EPINASTINE HYDROCHLORIDE [Concomitant]
     Route: 048
     Dates: start: 20120213

REACTIONS (2)
  - HAEMOGLOBIN DECREASED [None]
  - INTRAOCULAR PRESSURE INCREASED [None]
